FAERS Safety Report 8838774 (Version 1)
Quarter: 2012Q4

REPORT INFORMATION
  Report Type: 
  Country: IN (occurrence: IN)
  Receive Date: 20121012
  Receipt Date: 20121012
  Transmission Date: 20130627
  Serious: Yes (Disabling)
  Sender: FDA-Public Use
  Company Number: IN-MERCK-1210IND005107

PATIENT
  Age: 52 Year
  Sex: Female

DRUGS (1)
  1. JANUVIA [Suspect]
     Dosage: UNK, Once
     Route: 048

REACTIONS (2)
  - Impaired work ability [Recovered/Resolved]
  - Asthenia [Recovered/Resolved]
